FAERS Safety Report 8075809-6 (Version None)
Quarter: 2012Q1

REPORT INFORMATION
  Report Type: 
  Country: None (occurrence: None)
  Receive Date: 20120127
  Receipt Date: 20120118
  Transmission Date: 20120608
  Serious: Yes (Hospitalization)
  Sender: FDA-Public Use
  Company Number: CA-SANOFI-AVENTIS-2012SA004027

PATIENT
  Age: 56 Year
  Sex: Male

DRUGS (8)
  1. PANTOPRAZOLE [Concomitant]
     Dosage: START DATE: UNKNOWN LONG TIME
     Route: 048
  2. KAYEXALATE [Suspect]
     Route: 048
  3. FUROSEMIDE [Concomitant]
     Dosage: START DATE: UNKNOWN LONG TIME
     Route: 048
  4. HYDRALAZINE HCL [Concomitant]
     Dosage: START DATE: UNKNOWN LONG TIME
     Route: 048
  5. ATORVASTATIN [Concomitant]
     Dosage: START DATE: UNKNOWN LONG TIME
     Route: 048
  6. GLICLAZIDE [Concomitant]
     Dosage: 2 X 30 MG MODIFIED RELEASE, UNKNOWN LONG TIME
     Route: 048
  7. AMLODIPINE [Concomitant]
     Dosage: START DATE: UNKNOWN LONG TIME
     Route: 048
  8. ATENOLOL [Concomitant]
     Dosage: START DATE: UNKNOWN LONG TIME
     Route: 048

REACTIONS (3)
  - HYPERKALAEMIA [None]
  - DYSPNOEA [None]
  - PAIN [None]
